FAERS Safety Report 21274639 (Version 1)
Quarter: 2022Q3

REPORT INFORMATION
  Report Type: Spontaneous
  Country: US (occurrence: US)
  Receive Date: 20220831
  Receipt Date: 20220831
  Transmission Date: 20221027
  Serious: Yes (Other)
  Sender: FDA-Public Use
  Company Number: US-AMERICAN REGENT INC-2022001791

PATIENT
  Sex: Female
  Weight: 104.76 kg

DRUGS (11)
  1. FERRIC CARBOXYMALTOSE [Suspect]
     Active Substance: FERRIC CARBOXYMALTOSE
     Indication: Iron deficiency anaemia
     Dosage: 750 MILLIGRAM, IN SODIUM CHLORIDE (NS) 0.9 % 250 ML SINGLE
     Route: 042
     Dates: start: 20191212, end: 20191212
  2. FERRIC CARBOXYMALTOSE [Suspect]
     Active Substance: FERRIC CARBOXYMALTOSE
     Dosage: 750 MILLIGRAM, IN SODIUM CHLORIDE (NS) 0.9 % 250 ML SINGLE
     Route: 042
     Dates: start: 20191220, end: 20191220
  3. ZYRTEC [Concomitant]
     Active Substance: CETIRIZINE HYDROCHLORIDE
     Indication: Product used for unknown indication
     Dosage: 10 MILLIGRAM, QD
     Route: 048
  4. FLONASE [Concomitant]
     Active Substance: FLUTICASONE PROPIONATE
     Indication: Sinusitis
     Dosage: 50 MICROGRAM/SPRAY, 2 SPRAYS IN EACH NOSTRIL
     Route: 045
     Dates: start: 20190123, end: 20200928
  5. MOBIC [Concomitant]
     Active Substance: MELOXICAM
     Indication: Pain
     Dosage: 15 MILLIGRAM, QD
     Route: 048
     Dates: start: 20190714
  6. ROBAXIN [Concomitant]
     Active Substance: METHOCARBAMOL
     Indication: Pain
     Dosage: 500 MILLIGRAM, TAKE 1 TO 2 TABLETS BY MOUTH EVERY EVENING AS NEEDED
     Route: 048
     Dates: start: 20190617
  7. VITAMINS NOS [Concomitant]
     Active Substance: VITAMINS
     Indication: Product used for unknown indication
     Dosage: TAKE 1 TABLET, QD
     Route: 048
  8. PRILOSEC [Concomitant]
     Active Substance: OMEPRAZOLE MAGNESIUM
     Indication: Gastrooesophageal reflux disease
     Dosage: 20 MILLIGRAM, QD
     Route: 048
     Dates: start: 20191104, end: 20200506
  9. CARAFATE [Concomitant]
     Active Substance: SUCRALFATE
     Indication: Gastrooesophageal reflux disease
     Dosage: 1 GRAM, BID
     Route: 048
     Dates: start: 20191105, end: 20200508
  10. PROAIR RESPICLICK [Concomitant]
     Active Substance: ALBUTEROL SULFATE
     Indication: Wheezing
     Dosage: 108 (90 BASE) MCG/ACT INHALER, INHALE 1-2 PUFFS EVERY 4 HOURS AS NEEDED
     Dates: start: 20181026
  11. VITAMIN B12 [Concomitant]
     Active Substance: CYANOCOBALAMIN
     Indication: Vitamin B12 deficiency
     Dosage: 1000 MICROGRAM UNDER THE SKIN MONTLY
     Route: 058
     Dates: start: 20191209, end: 20191209

REACTIONS (1)
  - Hypophosphataemia [Recovered/Resolved]
